FAERS Safety Report 8085681-6 (Version None)
Quarter: 2012Q1

REPORT INFORMATION
  Report Type: 
  Country: None (occurrence: None)
  Receive Date: 20120128
  Receipt Date: 20110404
  Transmission Date: 20120608
  Serious: No
  Sender: FDA-Public Use
  Company Number: US-ABBOTT-11P-163-0716375-00

PATIENT
  Age: 15 Year
  Sex: Female

DRUGS (2)
  1. PREDNISONE TAB [Concomitant]
     Indication: PRODUCT USED FOR UNKNOWN INDICATION
     Dosage: DAILY
     Route: 048
  2. HUMIRA [Suspect]
     Indication: COLITIS
     Dates: start: 20110222

REACTIONS (4)
  - ECZEMA [None]
  - PRURITUS [None]
  - ERYTHEMA [None]
  - DRY SKIN [None]
